FAERS Safety Report 9772325 (Version 1)
Quarter: 2013Q4

REPORT INFORMATION
  Report Type: Spontaneous
  Country: US (occurrence: None)
  Receive Date: 20131218
  Receipt Date: 20131218
  Transmission Date: 20140711
  Serious: Yes (Other)
  Sender: FDA-Public Use
  Company Number: None

PATIENT
  Age: 18 Year
  Sex: Male
  Weight: 84.37 kg

DRUGS (2)
  1. CLONIDINE [Suspect]
     Dosage: 0.1MG/ 1 AM 2 HS PO ?LAS 2+YRS
     Route: 048
  2. CLONIDINE [Suspect]
     Dosage: 0.1MG/ 1 AM 2 HS PO ?LAS 2+YRS
     Route: 048

REACTIONS (4)
  - Anger [None]
  - Aggression [None]
  - Atrial septal defect [None]
  - Impulsive behaviour [None]
